FAERS Safety Report 6187497-4 (Version None)
Quarter: 2009Q2

REPORT INFORMATION
  Report Type: 
  Country: None (occurrence: None)
  Receive Date: 20090512
  Receipt Date: 20090501
  Transmission Date: 20091009
  Serious: Yes (Other)
  Sender: FDA-Public Use
  Company Number: CA-JNJFOC-20090501021

PATIENT
  Age: 7 Year
  Sex: Female

DRUGS (6)
  1. REMICADE [Suspect]
     Dosage: 4 DAYS AFTER THE 2ND ATTEMPT
     Route: 042
  2. REMICADE [Suspect]
     Dosage: 2ND INFUSION
     Route: 042
  3. REMICADE [Suspect]
     Indication: CROHN'S DISEASE
     Dosage: 1ST INFUSION
     Route: 042
  4. BENADRYL [Concomitant]
     Indication: PREMEDICATION
     Dosage: GIVEN WITH 3RD INFUSION
  5. SOLU-CORTEF [Concomitant]
     Indication: PREMEDICATION
     Dosage: GIVEN WITH 3RD INFUSION
  6. TYLENOL [Concomitant]
     Indication: PREMEDICATION
     Dosage: GIVEN WITH 3RD INFUSION

REACTIONS (4)
  - CHOKING SENSATION [None]
  - INFUSION RELATED REACTION [None]
  - RASH [None]
  - VOMITING [None]
